FAERS Safety Report 14255069 (Version 1)
Quarter: 2017Q4

REPORT INFORMATION
  Report Type: Spontaneous
  Country: US (occurrence: None)
  Receive Date: 20171124
  Receipt Date: 20171124
  Transmission Date: 20180321
  Serious: No
  Sender: FDA-Public Use
  Company Number: None

PATIENT
  Sex: Female

DRUGS (1)
  1. FORTEO [Suspect]
     Active Substance: TERIPARATIDE
     Dosage: 250MCG/ML 20 MCG DAILY SUBCUTANEOUSLY
     Route: 058
     Dates: start: 20170818

REACTIONS (4)
  - Pain [None]
  - Abdominal discomfort [None]
  - Gait disturbance [None]
  - Pain in extremity [None]
